FAERS Safety Report 16671144 (Version 1)
Quarter: 2019Q3

REPORT INFORMATION
  Report Type: Spontaneous
  Country: US (occurrence: US)
  Receive Date: 20190805
  Receipt Date: 20190805
  Transmission Date: 20191004
  Serious: No
  Sender: FDA-Public Use
  Company Number: US-ASTRAZENECA-2019SF00855

PATIENT
  Age: 859 Month
  Sex: Male
  Weight: 90.7 kg

DRUGS (1)
  1. ROSUVASTATIN CALCIUM. [Suspect]
     Active Substance: ROSUVASTATIN CALCIUM
     Indication: BLOOD CHOLESTEROL
     Route: 048
     Dates: start: 2016

REACTIONS (4)
  - Weight increased [Not Recovered/Not Resolved]
  - Blood cholesterol decreased [Unknown]
  - Glucose tolerance impaired [Unknown]
  - Haemoglobin abnormal [Unknown]

NARRATIVE: CASE EVENT DATE: 201904
